FAERS Safety Report 6903136-6 (Version None)
Quarter: 2010Q3

REPORT INFORMATION
  Report Type: 
  Country: None (occurrence: None)
  Receive Date: 20100803
  Receipt Date: 20080712
  Transmission Date: 20110219
  Serious: Yes (Other)
  Sender: FDA-Public Use
  Company Number: US-PFIZER INC-2008046277

PATIENT
  Sex: Female
  Weight: 70.3 kg

DRUGS (13)
  1. LYRICA [Suspect]
     Indication: FIBROMYALGIA
     Route: 048
     Dates: start: 20080317, end: 20080519
  2. XANAX [Concomitant]
  3. VALIUM [Concomitant]
  4. FLOVENT [Concomitant]
  5. ALBUTEROL [Concomitant]
  6. ACETYLSALICYLIC ACID SRT [Concomitant]
  7. NEXIUM [Concomitant]
  8. ZANTAC [Concomitant]
  9. CHONDROITIN/GLUCOSAMINE/METHYLSULFONYLMETHANE [Concomitant]
  10. LOVAZA [Concomitant]
  11. VITAMIN TAB [Concomitant]
  12. PRAVASTATIN [Concomitant]
  13. ALLEGRA [Concomitant]

REACTIONS (6)
  - ABNORMAL DREAMS [None]
  - ECCHYMOSIS [None]
  - FALL [None]
  - HEAD INJURY [None]
  - PERIORBITAL HAEMATOMA [None]
  - THINKING ABNORMAL [None]
